FAERS Safety Report 6415073-4 (Version None)
Quarter: 2009Q4

REPORT INFORMATION
  Report Type: 
  Country: None (occurrence: None)
  Receive Date: 20091021
  Receipt Date: 20091013
  Transmission Date: 20100525
  Serious: Yes (Hospitalization)
  Sender: FDA-Public Use
  Company Number: TCI2009A03608

PATIENT
  Age: 82 Year
  Sex: Female

DRUGS (5)
  1. LANSOPRAZOLE [Suspect]
     Indication: GASTRIC ULCER
     Dosage: PER ORAL
     Route: 048
     Dates: start: 20080401
  2. MAGMITT (MAGNESIUM OXIDE) [Concomitant]
  3. SUCRALFATE [Concomitant]
  4. PLETAL [Concomitant]
  5. DIOVAN [Concomitant]

REACTIONS (9)
  - ASCITES [None]
  - COLD SWEAT [None]
  - COLITIS COLLAGENOUS [None]
  - CONSTIPATION [None]
  - DIARRHOEA [None]
  - HAEMATOCHEZIA [None]
  - LARGE INTESTINAL ULCER [None]
  - PERITONITIS [None]
  - VOMITING [None]
